FAERS Safety Report 10242863 (Version 2)
Quarter: 2014Q2

REPORT INFORMATION
  Report Type: Spontaneous
  Country: JP (occurrence: JP)
  Receive Date: 20140618
  Receipt Date: 20140618
  Transmission Date: 20141212
  Serious: Yes (Hospitalization)
  Sender: FDA-Public Use
  Company Number: JP-TAKEDA-2013TJP004341

PATIENT
  Age: 68 Year
  Sex: Male
  Weight: 57.3 kg

DRUGS (9)
  1. TAKEPRON OD TABLETS 30 [Suspect]
     Indication: GASTROOESOPHAGEAL REFLUX DISEASE
     Dosage: 30 MG, QD
     Route: 048
     Dates: start: 20120208, end: 201205
  2. TAKEPRON OD TABLETS 30 [Suspect]
     Dosage: 15 MG, QD
     Route: 048
     Dates: start: 201206, end: 201209
  3. PRAVASTAN [Concomitant]
     Indication: HYPERLIPIDAEMIA
     Dosage: 10 MG, UNK
     Route: 048
     Dates: start: 20120208, end: 20121208
  4. SIGMART [Concomitant]
     Indication: PRINZMETAL ANGINA
     Dosage: 5 MG, TID
     Route: 048
     Dates: start: 20111222
  5. MEVALOTIN [Concomitant]
     Dosage: UNK
     Route: 048
     Dates: start: 20111227
  6. CONIEL [Concomitant]
     Indication: HYPERTENSION
     Dosage: 4 MG, UNK
     Route: 048
     Dates: start: 20111222
  7. NITROPEN [Concomitant]
     Dosage: UNK, PRN
     Route: 048
     Dates: start: 20111222
  8. LIPITOR [Concomitant]
     Dosage: UNK
     Route: 048
     Dates: start: 201205, end: 201210
  9. CALBLOCK [Concomitant]
     Dosage: UNK
     Route: 048
     Dates: start: 201205, end: 201210

REACTIONS (3)
  - Colitis microscopic [Recovering/Resolving]
  - Decreased appetite [Unknown]
  - Weight decreased [Unknown]
